FAERS Safety Report 19836151 (Version 1)
Quarter: 2021Q3

REPORT INFORMATION
  Report Type: Spontaneous
  Country: US (occurrence: US)
  Receive Date: 20210915
  Receipt Date: 20210915
  Transmission Date: 20211014
  Serious: No
  Sender: FDA-Public Use
  Company Number: US-BIOHAVEN PHARMACEUTICALS-2021BHV01075

PATIENT
  Age: 56 Year
  Sex: Female
  Weight: 68.93 kg

DRUGS (4)
  1. UBRELVY [Concomitant]
     Active Substance: UBROGEPANT
  2. INDOMETHACIN. [Concomitant]
     Active Substance: INDOMETHACIN
  3. BOTOX [Concomitant]
     Active Substance: ONABOTULINUMTOXINA
  4. NURTEC ODT [Suspect]
     Active Substance: RIMEGEPANT SULFATE
     Indication: MIGRAINE
     Dosage: 75 MG, AS NEEDED
     Route: 048
     Dates: start: 202104, end: 20210721

REACTIONS (5)
  - Feeling abnormal [Unknown]
  - Abdominal pain upper [Unknown]
  - Vomiting [Unknown]
  - Dizziness [Unknown]
  - Nausea [Unknown]

NARRATIVE: CASE EVENT DATE: 202104
